FAERS Safety Report 9032593 (Version 1)
Quarter: 2013Q1

REPORT INFORMATION
  Report Type: Spontaneous
  Country: IT (occurrence: None)
  Receive Date: 20130109
  Receipt Date: 20130109
  Transmission Date: 20140127
  Serious: Yes (Hospitalization)
  Sender: FDA-Public Use
  Company Number: AUR-APL-2012-05665

PATIENT
  Age: 86 Year
  Sex: Male

DRUGS (7)
  1. SERTRALINE (SERTRALINE) (SERTRALINE) [Suspect]
     Indication: DEPRESSION
     Route: 048
     Dates: start: 20121215, end: 20121227
  2. COUMADIN (WARFARIN SODIUM) [Suspect]
     Indication: PRODUCT USED FOR UNKNOWN INDICATION
     Route: 048
     Dates: start: 20120101, end: 20121221
  3. AMIODAR [Suspect]
     Indication: PRODUCT USED FOR UNKNOWN INDICATION
     Dates: start: 20120101, end: 20121227
  4. LASIX (FUROSEMIDE) [Concomitant]
  5. DIAMOX (ACETAZOLAMIDE) [Concomitant]
  6. LUVION (CANRENOIC ACID) [Concomitant]
  7. LEVOCARNITINA (LEVOCARNITINE) [Concomitant]

REACTIONS (2)
  - Haematuria [None]
  - International normalised ratio increased [None]
